FAERS Safety Report 9236975 (Version 1)
Quarter: 2013Q2

REPORT INFORMATION
  Report Type: Spontaneous
  Country: US (occurrence: US)
  Receive Date: 20130417
  Receipt Date: 20130417
  Transmission Date: 20140414
  Serious: Yes (Hospitalization, Other)
  Sender: FDA-Public Use
  Company Number: US-NICOBRDEVP-2013-06178

PATIENT
  Age: 68 Year
  Sex: Female

DRUGS (1)
  1. ALLOPURINOL (UNKNOWN) [Suspect]
     Indication: PRODUCT USED FOR UNKNOWN INDICATION
     Dosage: UNK, UNKNOWN
     Route: 065

REACTIONS (3)
  - Stevens-Johnson syndrome [Recovering/Resolving]
  - Myocarditis [Recovered/Resolved]
  - Diarrhoea [Unknown]
